FAERS Safety Report 8059353-8 (Version None)
Quarter: 2012Q1

REPORT INFORMATION
  Report Type: 
  Country: None (occurrence: None)
  Receive Date: 20120120
  Receipt Date: 20120120
  Transmission Date: 20120608
  Serious: Yes (Disabling, Other)
  Sender: FDA-Public Use
  Company Number: None

PATIENT
  Age: 72 Year
  Sex: Female
  Weight: 65.77 kg

DRUGS (1)
  1. WALGREENS ANTI-FUNGAL LIQUID [Suspect]
     Indication: ONYCHOMYCOSIS
     Dosage: USE DAILY FOR 4 WEEKS
     Route: 061
     Dates: start: 20120111, end: 20120115

REACTIONS (2)
  - SKIN INFECTION [None]
  - CHEMICAL BURN OF SKIN [None]
